FAERS Safety Report 24185811 (Version 7)
Quarter: 2025Q3

REPORT INFORMATION
  Report Type: Spontaneous
  Country: US (occurrence: US)
  Receive Date: 20240807
  Receipt Date: 20250710
  Transmission Date: 20251020
  Serious: Yes (Other)
  Sender: SANOFI AVENTIS
  Company Number: US-SA-SAC20240806000101

PATIENT
  Age: 43 Year
  Sex: Female

DRUGS (3)
  1. DUPIXENT [Suspect]
     Active Substance: DUPILUMAB
     Indication: Bronchopulmonary aspergillosis allergic
     Route: 058
     Dates: start: 20240730, end: 20240730
  2. DUPIXENT [Suspect]
     Active Substance: DUPILUMAB
     Indication: Asthma
     Dosage: 300 MG, QOW
     Route: 058
     Dates: start: 202408, end: 202505
  3. DUPIXENT [Suspect]
     Active Substance: DUPILUMAB
     Dosage: 300 MG, QOW
     Route: 058
     Dates: start: 2025

REACTIONS (16)
  - Seizure [Unknown]
  - COVID-19 [Recovering/Resolving]
  - Influenza [Recovering/Resolving]
  - Feeling abnormal [Unknown]
  - Visual impairment [Unknown]
  - Sneezing [Recovering/Resolving]
  - Cough [Recovering/Resolving]
  - Migraine [Unknown]
  - Vision blurred [Not Recovered/Not Resolved]
  - Condition aggravated [Not Recovered/Not Resolved]
  - Dizziness [Unknown]
  - Headache [Unknown]
  - Product use in unapproved indication [Unknown]
  - Hypersensitivity [Unknown]
  - Urticaria [Unknown]
  - Rash [Unknown]

NARRATIVE: CASE EVENT DATE: 20240101
